FAERS Safety Report 5868644-8 (Version None)
Quarter: 2008Q3

REPORT INFORMATION
  Report Type: 
  Country: None (occurrence: None)
  Receive Date: 20080903
  Receipt Date: 20080827
  Transmission Date: 20090109
  Serious: Yes (Other)
  Sender: FDA-Public Use
  Company Number: GB-TEVA-176542ISR

PATIENT
  Age: 64 Year
  Sex: Male
  Weight: 63.5 kg

DRUGS (1)
  1. BECLOMETHASONE DIPROPIONATE [Suspect]
     Indication: ASTHMA
     Route: 055
     Dates: start: 20080728, end: 20080810

REACTIONS (1)
  - INCREASED TENDENCY TO BRUISE [None]
